FAERS Safety Report 10347864 (Version 3)
Quarter: 2014Q4

REPORT INFORMATION
  Report Type: Spontaneous
  Country: IT (occurrence: IT)
  Receive Date: 20140729
  Receipt Date: 20141128
  Transmission Date: 20150528
  Serious: Yes (Hospitalization)
  Sender: FDA-Public Use
  Company Number: IT-PFIZER INC-2014210375

PATIENT
  Age: 58 Year
  Sex: Female

DRUGS (2)
  1. HALCION [Suspect]
     Active Substance: TRIAZOLAM
     Indication: INTENTIONAL SELF-INJURY
     Dosage: 1.5 MG, SINGLE
     Route: 048
     Dates: start: 20140619, end: 20140619
  2. PLAUNAC [Suspect]
     Active Substance: OLMESARTAN MEDOXOMIL
     Indication: INTENTIONAL SELF-INJURY
     Dosage: 120 MG, SINGLE
     Route: 048
     Dates: start: 20140619, end: 20140619

REACTIONS (4)
  - Intentional self-injury [Recovered/Resolved]
  - Drug abuse [Recovered/Resolved]
  - Overdose [Recovered/Resolved]
  - Sopor [Recovered/Resolved]

NARRATIVE: CASE EVENT DATE: 20140619
